FAERS Safety Report 8982035 (Version 1)
Quarter: 2012Q4

REPORT INFORMATION
  Report Type: 
  Country: US (occurrence: US)
  Receive Date: 20121212
  Receipt Date: 20121212
  Transmission Date: 20130627
  Serious: Yes (Death, Hospitalization)
  Sender: FDA-Public Use
  Company Number: US-ASTELLAS-1120406

PATIENT
  Sex: Female

DRUGS (2)
  1. TARCEVA [Suspect]
     Indication: PANCREATIC CARCINOMA
     Route: 048
  2. GEMCITABINE [Concomitant]

REACTIONS (5)
  - Malaise [Unknown]
  - Drug ineffective [Unknown]
  - Disease progression [Fatal]
  - Deep vein thrombosis [Unknown]
  - Vena cava thrombosis [Unknown]
